FAERS Safety Report 10018001 (Version 2)
Quarter: 2014Q1

REPORT INFORMATION
  Report Type: Spontaneous
  Country: IT (occurrence: IT)
  Receive Date: 20140318
  Receipt Date: 20140320
  Transmission Date: 20141002
  Serious: Yes (Hospitalization)
  Sender: FDA-Public Use
  Company Number: IT-TEVA-467220ISR

PATIENT
  Age: 22 Year
  Sex: Female

DRUGS (3)
  1. VENLAFAXINE [Suspect]
     Indication: INTENTIONAL SELF-INJURY
     Dosage: 525 MG TOTAL
     Route: 048
     Dates: start: 20140225, end: 20140225
  2. SEROQUEL - 100 MG FILM COATED TABLET [Suspect]
     Indication: INTENTIONAL SELF-INJURY
     Dosage: 20 DF TOTAL
     Route: 048
     Dates: start: 20140225, end: 20140225
  3. AKINETON - 4 MG PROLONGED-RELEASE TABLET [Suspect]
     Indication: INTENTIONAL SELF-INJURY
     Dosage: 40 DF TOTAL
     Route: 048
     Dates: start: 20140225, end: 20140225

REACTIONS (4)
  - Coma [Recovered/Resolved]
  - Drug abuse [Recovered/Resolved]
  - Intentional self-injury [Recovered/Resolved]
  - Overdose [Recovered/Resolved]
